FAERS Safety Report 10413171 (Version 2)
Quarter: 2015Q4

REPORT INFORMATION
  Report Type: Spontaneous
  Country: DK (occurrence: DK)
  Receive Date: 20140827
  Receipt Date: 20151224
  Transmission Date: 20160304
  Serious: Yes (Hospitalization)
  Sender: FDA-Public Use
  Company Number: PHHY2014DK104826

PATIENT
  Age: 62 Year
  Sex: Female

DRUGS (1)
  1. METFORMIN [Suspect]
     Active Substance: METFORMIN HYDROCHLORIDE
     Indication: TYPE 2 DIABETES MELLITUS
     Dosage: 1000 MG,STRYKE500MG
     Route: 048
     Dates: start: 201201

REACTIONS (10)
  - Vomiting [Recovered/Resolved]
  - Lactic acidosis [Not Recovered/Not Resolved]
  - Dyspnoea [Recovered/Resolved]
  - Liver disorder [Not Recovered/Not Resolved]
  - Back pain [Unknown]
  - Nausea [Recovered/Resolved]
  - Renal impairment [Not Recovered/Not Resolved]
  - Faeces discoloured [Recovered/Resolved]
  - Acute kidney injury [Recovered/Resolved with Sequelae]
  - Pain [Not Recovered/Not Resolved]

NARRATIVE: CASE EVENT DATE: 20140204
